FAERS Safety Report 15689168 (Version 1)
Quarter: 2018Q4

REPORT INFORMATION
  Report Type: Spontaneous
  Country: GB (occurrence: GB)
  Receive Date: 20181205
  Receipt Date: 20181205
  Transmission Date: 20190205
  Serious: Yes (Hospitalization)
  Sender: FDA-Public Use
  Company Number: PHHY2018GB175687

PATIENT
  Age: 51 Year
  Sex: Male
  Weight: 114.3 kg

DRUGS (4)
  1. OMNITROPE [Suspect]
     Active Substance: SOMATROPIN
     Dosage: 5MG/1.5 ML
     Route: 058
     Dates: start: 20130225
  2. OMNITROPE [Suspect]
     Active Substance: SOMATROPIN
     Indication: GRAFT VERSUS HOST DISEASE
     Dosage: 5MG/1.5 ML
     Route: 058
  3. OMNITROPE [Suspect]
     Active Substance: SOMATROPIN
     Dosage: 5MG/1.5 ML
     Route: 058
     Dates: start: 20140108
  4. FLUOXETINE [Concomitant]
     Active Substance: FLUOXETINE HYDROCHLORIDE
     Indication: PRODUCT USED FOR UNKNOWN INDICATION
     Dosage: UNK
     Route: 065
     Dates: start: 20140518

REACTIONS (4)
  - Atrial fibrillation [Unknown]
  - Hyponatraemia [Recovering/Resolving]
  - Myocardial infarction [Recovered/Resolved]
  - Confusional state [Recovering/Resolving]
